FAERS Safety Report 21619479 (Version 2)
Quarter: 2022Q4

REPORT INFORMATION
  Report Type: Report from Study
  Country: FR (occurrence: None)
  Receive Date: 20221121
  Receipt Date: 20221226
  Transmission Date: 20230112
  Serious: Yes (Hospitalization)
  Sender: FDA-Public Use
  Company Number: 2022A372076

PATIENT
  Age: 822 Month
  Sex: Female

DRUGS (5)
  1. DURVALUMAB [Suspect]
     Active Substance: DURVALUMAB
     Indication: Biliary tract disorder
     Dosage: 1500.0MG UNKNOWN
     Route: 042
     Dates: start: 20220829, end: 20221029
  2. SELUMETINIB [Suspect]
     Active Substance: SELUMETINIB
     Indication: Biliary tract disorder
     Dosage: 150.0MG UNKNOWN
     Route: 048
     Dates: start: 20220929, end: 20221025
  3. INSULIN GLARGINE [Concomitant]
     Active Substance: INSULIN GLARGINE
     Indication: Type 2 diabetes mellitus
     Route: 065
     Dates: start: 20220701
  4. AMOROLFINE HYDROCHLORIDE [Concomitant]
     Active Substance: AMOROLFINE HYDROCHLORIDE
     Indication: Fungal infection
     Route: 065
     Dates: start: 20220729
  5. ELIQUIS [Concomitant]
     Active Substance: APIXABAN
     Indication: Thrombosis
     Route: 065
     Dates: start: 20220930

REACTIONS (1)
  - Duodenal obstruction [Recovered/Resolved]

NARRATIVE: CASE EVENT DATE: 20221026
